FAERS Safety Report 25439165 (Version 1)
Quarter: 2025Q2

REPORT INFORMATION
  Report Type: Spontaneous
  Country: US (occurrence: None)
  Receive Date: 20250614
  Receipt Date: 20250614
  Transmission Date: 20250717
  Serious: Yes (Death)
  Sender: FDA-CTU
  Company Number: None

PATIENT
  Age: 90 Year
  Sex: Male
  Weight: 81 kg

DRUGS (1)
  1. ELIQUIS [Suspect]
     Active Substance: APIXABAN
     Indication: Atrial fibrillation
     Route: 048
     Dates: start: 20250101, end: 20250531

REACTIONS (4)
  - Agitation [None]
  - Confusional state [None]
  - Neurological symptom [None]
  - Haemorrhage intracranial [None]

NARRATIVE: CASE EVENT DATE: 20250531
